FAERS Safety Report 7882386-9 (Version None)
Quarter: 2011Q4

REPORT INFORMATION
  Report Type: 
  Country: None (occurrence: None)
  Receive Date: 20111101
  Receipt Date: 20110614
  Transmission Date: 20120403
  Serious: No
  Sender: FDA-Public Use
  Company Number: US-AMGEN-USASP2011030511

PATIENT
  Age: 21 Year
  Sex: Female

DRUGS (1)
  1. ENBREL [Suspect]
     Indication: PSORIATIC ARTHROPATHY
     Dates: start: 20110101

REACTIONS (4)
  - JOINT SWELLING [None]
  - PSORIATIC ARTHROPATHY [None]
  - CONTUSION [None]
  - LIGAMENT SPRAIN [None]
